FAERS Safety Report 4594861-3 (Version None)
Quarter: 2005Q1

REPORT INFORMATION
  Report Type: 
  Country: None (occurrence: None)
  Receive Date: 20050223
  Receipt Date: 20050209
  Transmission Date: 20050727
  Serious: Yes (Other)
  Sender: FDA-Public Use
  Company Number: 2003148864US

PATIENT
  Sex: Female

DRUGS (1)
  1. ROGAINE [Suspect]
     Indication: FEMALE PATTERN BALDNESS
     Dosage: 1 ML BID, TOPICAL
     Route: 061
     Dates: start: 20030201, end: 20031101

REACTIONS (8)
  - ALOPECIA [None]
  - BLISTER [None]
  - HYPERAESTHESIA [None]
  - HYPOTRICHOSIS [None]
  - LOCALISED INFECTION [None]
  - SCAB [None]
  - SKIN ODOUR ABNORMAL [None]
  - WOUND SECRETION [None]
